FAERS Safety Report 17944890 (Version 6)
Quarter: 2020Q3

REPORT INFORMATION
  Report Type: Report from Study
  Country: None (occurrence: IE)
  Receive Date: 20200625
  Receipt Date: 20200712
  Transmission Date: 20201103
  Serious: Yes (Hospitalization, Other)
  Sender: FDA-Public Use
  Company Number: IE-ABBVIE-20K-229-3458821-00

PATIENT
  Age: 67 Year
  Sex: Male

DRUGS (9)
  1. STALEVO [Concomitant]
     Active Substance: CARBIDOPA\ENTACAPONE\LEVODOPA
     Indication: PRODUCT USED FOR UNKNOWN INDICATION
     Route: 050
  2. VALDOXAN [Concomitant]
     Active Substance: AGOMELATINE
     Indication: PRODUCT USED FOR UNKNOWN INDICATION
     Route: 050
  3. MOVICOL [Concomitant]
     Active Substance: POLYETHYLENE GLYCOL 3350\POTASSIUM CHLORIDE\SODIUM BICARBONATE\SODIUM CHLORIDE
     Indication: PRODUCT USED FOR UNKNOWN INDICATION
     Route: 050
  4. DUODOPA [Suspect]
     Active Substance: CARBIDOPA\LEVODOPA
     Indication: PARKINSON^S DISEASE
     Dosage: CONTINUOUS,?1 CASSETTE?20 MG/ML 5 MG/ML
     Route: 050
     Dates: start: 20180514, end: 2020
  5. SINEMET [Concomitant]
     Active Substance: CARBIDOPA\LEVODOPA
     Indication: PRODUCT USED FOR UNKNOWN INDICATION
     Dosage: HALF SINEMET CR; NIGHT
     Route: 050
  6. ANXICALM [Concomitant]
     Indication: PRODUCT USED FOR UNKNOWN INDICATION
     Route: 050
  7. LACTULOSE. [Concomitant]
     Active Substance: LACTULOSE
     Indication: PRODUCT USED FOR UNKNOWN INDICATION
     Route: 050
  8. MADOPAR 62.5 [Concomitant]
     Active Substance: BENSERAZIDE HYDROCHLORIDE\LEVODOPA
     Indication: PRODUCT USED FOR UNKNOWN INDICATION
     Route: 048
     Dates: start: 2020
  9. ROSUVASTATIN. [Concomitant]
     Active Substance: ROSUVASTATIN
     Indication: PRODUCT USED FOR UNKNOWN INDICATION
     Route: 050

REACTIONS (16)
  - Mobility decreased [Recovering/Resolving]
  - Incorrect dose administered [Recovering/Resolving]
  - Device kink [Recovering/Resolving]
  - Embedded device [Recovering/Resolving]
  - Therapeutic product effect decreased [Recovering/Resolving]
  - Gastric disorder [Recovering/Resolving]
  - Device dislocation [Recovering/Resolving]
  - Delirium [Recovered/Resolved]
  - Abdominal pain [Recovering/Resolving]
  - Paralysis [Recovering/Resolving]
  - Infection [Recovering/Resolving]
  - Paranoia [Recovered/Resolved]
  - Device occlusion [Recovering/Resolving]
  - Loss of personal independence in daily activities [Recovering/Resolving]
  - Jejunal ulcer [Recovering/Resolving]
  - Bezoar [Recovering/Resolving]

NARRATIVE: CASE EVENT DATE: 2020
